FAERS Safety Report 18735429 (Version 1)
Quarter: 2021Q1

REPORT INFORMATION
  Report Type: Spontaneous
  Country: US (occurrence: US)
  Receive Date: 20210113
  Receipt Date: 20210113
  Transmission Date: 20210419
  Serious: Yes (Hospitalization)
  Sender: FDA-Public Use
  Company Number: None

PATIENT
  Sex: Female

DRUGS (2)
  1. PULMOZYME [Concomitant]
     Active Substance: DORNASE ALFA
  2. CREON [Suspect]
     Active Substance: PANCRELIPASE AMYLASE\PANCRELIPASE LIPASE\PANCRELIPASE PROTEASE
     Indication: CYSTIC FIBROSIS LUNG
     Dosage: ?          OTHER DOSE:10/6/50 DF W/MEALS;?
     Route: 048
     Dates: start: 20130717

REACTIONS (1)
  - Pancreatitis [None]
